FAERS Safety Report 10945453 (Version 1)
Quarter: 2015Q1

REPORT INFORMATION
  Report Type: Spontaneous
  Country: US (occurrence: None)
  Receive Date: 20150318
  Receipt Date: 20150318
  Transmission Date: 20150721
  Serious: Yes (Hospitalization)
  Sender: FDA-Public Use
  Company Number: 1713747-2015-99950

PATIENT
  Age: 37 Year
  Sex: Female
  Weight: 66 kg

DRUGS (26)
  1. .09% SOIDUM CHLORIDE INJECTION, USP [Suspect]
     Active Substance: SODIUM CHLORIDE
     Indication: CHRONIC KIDNEY DISEASE
     Dosage: HEMODIALYSIS
     Dates: start: 20121102
  2. GRANUFLO [Concomitant]
     Active Substance: ACETIC ACID\SODIUM ACETATE
  3. FMC BLOOD LINES [Concomitant]
     Active Substance: DEVICE
  4. ZEMPLAR [Concomitant]
     Active Substance: PARICALCITOL
  5. LOVENOX [Concomitant]
     Active Substance: ENOXAPARIN SODIUM
  6. COUMADIN [Concomitant]
     Active Substance: WARFARIN SODIUM
  7. TRAZODONE [Concomitant]
     Active Substance: TRAZODONE HYDROCHLORIDE
  8. TUMS [Concomitant]
     Active Substance: CALCIUM CARBONATE
  9. BABY ASPIRIN [Concomitant]
     Active Substance: ASPIRIN
  10. GABAPENTIN. [Concomitant]
     Active Substance: GABAPENTIN
  11. SODIUM BICARBONATE. [Concomitant]
     Active Substance: SODIUM BICARBONATE
  12. CALCIFEROL [Concomitant]
     Active Substance: ERGOCALCIFEROL
  13. ZOLOFT [Concomitant]
     Active Substance: SERTRALINE HYDROCHLORIDE
  14. LISINOPRIL. [Concomitant]
     Active Substance: LISINOPRIL
  15. FRESENIUS DIALYSIS MACHINE [Concomitant]
  16. EPOGEN [Concomitant]
     Active Substance: ERYTHROPOIETIN
  17. NORMAL SALINE [Concomitant]
     Active Substance: SODIUM CHLORIDE
  18. COREG [Concomitant]
     Active Substance: CARVEDILOL
  19. NEURONTIN [Concomitant]
     Active Substance: GABAPENTIN
  20. OPTIFLUX DIALYZER [Concomitant]
     Active Substance: DEVICE
  21. NATURALYTE [Concomitant]
     Active Substance: ACETIC ACID\SODIUM ACETATE
  22. HUMALOG [Concomitant]
     Active Substance: INSULIN LISPRO
  23. LANTUS [Concomitant]
     Active Substance: INSULIN GLARGINE
  24. NEPHRO-CAPS [Concomitant]
  25. RENVELA [Concomitant]
     Active Substance: SEVELAMER CARBONATE
  26. NORVASC [Concomitant]
     Active Substance: AMLODIPINE BESYLATE

REACTIONS (10)
  - Feeling abnormal [None]
  - Nausea [None]
  - Autonomic nervous system imbalance [None]
  - Feeling hot [None]
  - Orthostatic intolerance [None]
  - Unresponsive to stimuli [None]
  - Staring [None]
  - Grunting [None]
  - Loss of consciousness [None]
  - Syncope [None]

NARRATIVE: CASE EVENT DATE: 20121102
